FAERS Safety Report 8014316-3 (Version None)
Quarter: 2011Q4

REPORT INFORMATION
  Report Type: 
  Country: None (occurrence: None)
  Receive Date: 20111229
  Receipt Date: 20111220
  Transmission Date: 20120403
  Serious: Yes (Other)
  Sender: FDA-Public Use
  Company Number: RS-ASTRAZENECA-2011SE77229

PATIENT
  Age: 16968 Day
  Sex: Female
  Weight: 65 kg

DRUGS (3)
  1. BUPIVACAINE HCL [Suspect]
     Indication: NERVE BLOCK
     Route: 053
     Dates: start: 20111206, end: 20111206
  2. MIDAZOLAM [Concomitant]
     Route: 030
     Dates: start: 20111206, end: 20111206
  3. LIDOCAINE [Suspect]
     Indication: NERVE BLOCK
     Route: 053
     Dates: start: 20111206, end: 20111206

REACTIONS (7)
  - DYSPHAGIA [None]
  - DISORIENTATION [None]
  - HYPOAESTHESIA ORAL [None]
  - SPEECH DISORDER [None]
  - DYSPNOEA [None]
  - SOMNOLENCE [None]
  - CONFUSIONAL STATE [None]
